FAERS Safety Report 9780156 (Version 1)
Quarter: 2013Q4

REPORT INFORMATION
  Report Type: Report from Study
  Country: DE (occurrence: DE)
  Receive Date: 20131223
  Receipt Date: 20131223
  Transmission Date: 20140711
  Serious: Yes (Hospitalization)
  Sender: FDA-Public Use
  Company Number: DE-ABBVIE-13P-062-1181412-00

PATIENT
  Age: 32 Year
  Sex: Female

DRUGS (3)
  1. HUMIRA [Suspect]
     Indication: CROHN^S DISEASE
     Route: 058
     Dates: start: 2010, end: 2012
  2. STELARA [Suspect]
     Indication: CROHN^S DISEASE
     Dates: start: 201308, end: 201310
  3. REMICADE [Suspect]
     Indication: CROHN^S DISEASE
     Dates: start: 201310

REACTIONS (11)
  - Intestinal fistula [Recovered/Resolved]
  - Gastrointestinal fistula [Recovered/Resolved]
  - Peritoneal adhesions [Unknown]
  - Female genital tract fistula [Unknown]
  - Abdominal abscess [Unknown]
  - Ovarian cyst [Recovered/Resolved]
  - Intestinal stenosis [Unknown]
  - Clostridium difficile infection [Unknown]
  - Uterine leiomyoma [Unknown]
  - Endometriosis [Unknown]
  - Urinary tract infection [Recovered/Resolved]
